FAERS Safety Report 6978656-9 (Version None)
Quarter: 2010Q3

REPORT INFORMATION
  Report Type: 
  Country: None (occurrence: None)
  Receive Date: 20100913
  Receipt Date: 20100903
  Transmission Date: 20110219
  Serious: Yes (Death, Hospitalization)
  Sender: FDA-Public Use
  Company Number: A0849213A

PATIENT
  Age: 71 Year
  Sex: Female
  Weight: 105.9 kg

DRUGS (10)
  1. AVANDIA [Suspect]
     Dosage: 8MG PER DAY
     Route: 048
     Dates: start: 20031001, end: 20070601
  2. TEGRETOL [Concomitant]
  3. SEROQUEL [Concomitant]
  4. COGENTIN [Concomitant]
  5. VERAPAMIL HCL [Concomitant]
  6. ARICEPT [Concomitant]
  7. PLETAL [Concomitant]
  8. DIOVAN [Concomitant]
  9. DILANTIN [Concomitant]
  10. PHENOBARBITAL [Concomitant]

REACTIONS (3)
  - ARTERIOSCLEROSIS CORONARY ARTERY [None]
  - CARDIAC FAILURE CONGESTIVE [None]
  - CONVULSION [None]
